FAERS Safety Report 12618049 (Version 1)
Quarter: 2016Q3

REPORT INFORMATION
  Report Type: Spontaneous
  Country: US (occurrence: None)
  Receive Date: 20160802
  Receipt Date: 20160802
  Transmission Date: 20161109
  Serious: No
  Sender: FDA-Public Use
  Company Number: None

PATIENT

DRUGS (2)
  1. FLUOROURACIL. [Suspect]
     Active Substance: FLUOROURACIL
  2. MORPHINE [Suspect]
     Active Substance: MORPHINE

REACTIONS (2)
  - Rectal haemorrhage [None]
  - Wrong drug administered [None]
